FAERS Safety Report 5714912-X (Version None)
Quarter: 2008Q2

REPORT INFORMATION
  Report Type: 
  Country: None (occurrence: None)
  Receive Date: 20080423
  Receipt Date: 20080130
  Transmission Date: 20081010
  Serious: No
  Sender: FDA-Public Use
  Company Number: US-BAYER-200812137NA

PATIENT
  Age: 14 Year
  Sex: Male
  Weight: 90 kg

DRUGS (1)
  1. LEUKINE [Suspect]
     Indication: CROHN'S DISEASE
     Route: 058
     Dates: start: 20071226

REACTIONS (2)
  - RASH [None]
  - WHITE BLOOD CELL COUNT DECREASED [None]
